FAERS Safety Report 9454157 (Version 1)
Quarter: 2013Q3

REPORT INFORMATION
  Report Type: Spontaneous
  Country: US (occurrence: None)
  Receive Date: 20130809
  Receipt Date: 20130809
  Transmission Date: 20140515
  Serious: Yes (Other)
  Sender: FDA-Public Use
  Company Number: None

PATIENT
  Age: 0 Year
  Sex: Male

DRUGS (1)
  1. METHYLPREDNISOLONE ACETATE [Suspect]
     Indication: EPIDURAL INJECTION
     Dates: start: 201306, end: 201307

REACTIONS (5)
  - Device occlusion [None]
  - Syringe issue [None]
  - Incorrect dose administered by device [None]
  - Product formulation issue [None]
  - Product quality issue [None]
